FAERS Safety Report 7700988-7 (Version None)
Quarter: 2011Q3

REPORT INFORMATION
  Report Type: 
  Country: None (occurrence: None)
  Receive Date: 20110822
  Receipt Date: 20110817
  Transmission Date: 20111222
  Serious: Yes (Death, Hospitalization)
  Sender: FDA-Public Use
  Company Number: US-ASTELLAS-2011US003167

PATIENT
  Sex: Male
  Weight: 101 kg

DRUGS (7)
  1. LIDEX-E [Concomitant]
     Indication: RASH
     Dosage: BID PRN
     Route: 061
     Dates: start: 20110531
  2. ERLOTINIB HYDROCHLORIDE [Suspect]
     Indication: BLADDER TRANSITIONAL CELL CARCINOMA
     Dosage: 150 MG, UID/QD
     Route: 048
     Dates: start: 20110527, end: 20110605
  3. EFFEXOR [Concomitant]
     Indication: ANXIETY
     Dosage: 37.5 MG, UID/QD
     Route: 065
     Dates: start: 20110516
  4. LIPITOR [Concomitant]
     Indication: HYPERCHOLESTEROLAEMIA
     Dosage: 10 MG, UID/QD
     Route: 065
     Dates: start: 20080101
  5. LEVAQUIN [Concomitant]
     Indication: DYSPNOEA
     Dosage: 500 MG, UID/QD
     Route: 065
     Dates: start: 20110601
  6. METOPROLOL [Concomitant]
     Indication: HYPERTENSION
     Dosage: 50 MG, UID/QD
     Route: 065
     Dates: start: 20080101
  7. BISMUTH SUBSALICYLATE [Concomitant]
     Indication: DIARRHOEA
     Dosage: 30 ML, PRN
     Route: 065
     Dates: start: 20110601

REACTIONS (9)
  - BUNDLE BRANCH BLOCK RIGHT [None]
  - HYPOTENSION [None]
  - PNEUMONIA [None]
  - METASTATIC NEOPLASM [None]
  - ATRIAL FIBRILLATION [None]
  - TYPE III IMMUNE COMPLEX MEDIATED REACTION [None]
  - CARDIAC TAMPONADE [None]
  - RENAL FAILURE ACUTE [None]
  - PERICARDIAL EFFUSION [None]
